FAERS Safety Report 15897042 (Version 1)
Quarter: 2019Q1

REPORT INFORMATION
  Report Type: Spontaneous
  Country: US (occurrence: US)
  Receive Date: 20190131
  Receipt Date: 20190131
  Transmission Date: 20190417
  Serious: No
  Sender: FDA-Public Use
  Company Number: US-ZYDUS-021180

PATIENT
  Sex: Female

DRUGS (1)
  1. OXYCODONE [Suspect]
     Active Substance: OXYCODONE
     Indication: MUSCULOSKELETAL DISORDER

REACTIONS (12)
  - Haematochezia [Unknown]
  - Headache [Unknown]
  - Vaginal infection [Unknown]
  - Heart rate abnormal [Unknown]
  - Throat irritation [Unknown]
  - Nausea [Unknown]
  - Palpitations [Unknown]
  - Eye irritation [Unknown]
  - Drug ineffective [Unknown]
  - Vaginal discharge [Unknown]
  - Vomiting [Unknown]
  - Adverse drug reaction [Unknown]
